FAERS Safety Report 9678460 (Version 1)
Quarter: 2013Q4

REPORT INFORMATION
  Report Type: Spontaneous
  Country: US (occurrence: US)
  Receive Date: 20131108
  Receipt Date: 20131108
  Transmission Date: 20140711
  Serious: Yes (Other)
  Sender: FDA-Public Use
  Company Number: US-BRISTOL-MYERS SQUIBB COMPANY-19705599

PATIENT
  Age: 81 Year
  Sex: Female
  Weight: 72.56 kg

DRUGS (11)
  1. ELIQUIS [Suspect]
     Indication: ATRIAL FIBRILLATION
     Dosage: PRESCRIPTION#: 133575919
  2. COUMADIN [Suspect]
     Indication: ATRIAL FIBRILLATION
     Dosage: PRESCRIPTION#: 3150999
  3. BRIMONIDINE TARTRATE [Concomitant]
  4. DORZOLAMIDE HCL + TIMOLOL MALEATE [Concomitant]
     Indication: CORNEAL TRANSPLANT
  5. FLUOROMETHOLONE [Concomitant]
     Indication: DRY EYE
  6. TRAZODONE HCL [Concomitant]
     Indication: SLEEP DISORDER
  7. LORAZEPAM [Concomitant]
     Indication: SLEEP DISORDER
  8. LANTUS [Concomitant]
     Indication: BLOOD GLUCOSE INCREASED
     Dosage: 1DF:30U 2 HOURS AFTER DINNER?NORMALLY 25U
  9. METOPROLOL TARTRATE [Concomitant]
  10. DIGOXIN [Concomitant]
  11. BENICAR [Concomitant]

REACTIONS (3)
  - Pneumonia [Unknown]
  - Drug ineffective [Unknown]
  - Blood glucose increased [Unknown]
